FAERS Safety Report 15099725 (Version 2)
Quarter: 2018Q3

REPORT INFORMATION
  Report Type: Report from Study
  Country: None (occurrence: SI)
  Receive Date: 20180702
  Receipt Date: 20180811
  Transmission Date: 20181010
  Serious: Yes (Hospitalization, Disabling, Other)
  Sender: FDA-Public Use
  Company Number: SI-ABBVIE-18P-261-2402867-00

PATIENT
  Age: 74 Year
  Sex: Female
  Weight: 62 kg

DRUGS (16)
  1. DUODOPA [Suspect]
     Active Substance: CARBIDOPA\LEVODOPA
     Indication: PARKINSON^S DISEASE
     Dosage: TITRATION: DOSE AT NJ REMOVAL: MD:1 ML, CD: 3.5 ML/H, ED: 3 ML, 3X/D, 14 HR
     Route: 050
     Dates: start: 20170327, end: 20170329
  2. DUODOPA [Suspect]
     Active Substance: CARBIDOPA\LEVODOPA
     Dosage: MD: 6 ML, CD: 3.5 ML/H, ED: 2.5 ML, 4X/D, 16 HR
     Route: 050
     Dates: start: 20170710
  3. DUODOPA [Suspect]
     Active Substance: CARBIDOPA\LEVODOPA
     Dosage: MD: 4 ML, CD: 3.7 ML/H, ED: 2.5 ML, 0X/D, 13 HR
     Route: 050
     Dates: start: 20171010
  4. PANTOPRAZOL [Concomitant]
     Active Substance: PANTOPRAZOLE SODIUM
     Indication: GASTROOESOPHAGEAL REFLUX DISEASE
     Route: 048
     Dates: start: 201703
  5. DUODOPA [Suspect]
     Active Substance: CARBIDOPA\LEVODOPA
     Route: 050
     Dates: start: 20170329
  6. CONCOR COR [Concomitant]
     Active Substance: BISOPROLOL FUMARATE
     Indication: CARDIAC FAILURE CONGESTIVE
     Route: 048
     Dates: start: 2017
  7. PLIVIT D3 [Concomitant]
     Active Substance: CHOLECALCIFEROL
     Indication: OSTEOPOROSIS
     Dosage: GTT
     Route: 048
     Dates: start: 2017
  8. MADOPAR [Concomitant]
     Active Substance: BENSERAZIDE HYDROCHLORIDE\LEVODOPA
     Indication: PARKINSON^S DISEASE
     Dosage: 150/50 MG ANTE MERIDIEM
     Route: 048
     Dates: start: 201703
  9. DUODOPA [Suspect]
     Active Substance: CARBIDOPA\LEVODOPA
     Dosage: MD: 4 ML, CD: 2.8 ML/H, ED: 2 ML, 2X/D, 16 HR
     Route: 050
     Dates: start: 20180320
  10. NEUPRO [Concomitant]
     Active Substance: ROTIGOTINE
     Indication: PARKINSON^S DISEASE
     Route: 062
     Dates: start: 2015, end: 20180531
  11. STALEVO [Concomitant]
     Active Substance: CARBIDOPA\ENTACAPONE\LEVODOPA
     Dosage: 2 X OMNE NOCTE
     Route: 048
     Dates: start: 201703
  12. LACTECON SYRUP [Concomitant]
     Indication: CONSTIPATION
     Route: 048
     Dates: start: 201703
  13. MIRZATEN [Concomitant]
     Active Substance: MIRTAZAPINE
     Indication: PARKINSON^S DISEASE
     Dosage: QHS
     Route: 048
     Dates: start: 201703
  14. STALEVO [Concomitant]
     Active Substance: CARBIDOPA\ENTACAPONE\LEVODOPA
     Indication: PARKINSON^S DISEASE
     Dosage: QHS
     Route: 048
     Dates: start: 201703
  15. NIMVASTID [Concomitant]
     Indication: COGNITIVE DISORDER
     Route: 048
     Dates: start: 2016
  16. PRADAXA [Concomitant]
     Active Substance: DABIGATRAN ETEXILATE MESYLATE
     Indication: ATRIAL FIBRILLATION
     Route: 048
     Dates: start: 2016

REACTIONS (3)
  - Orthostatic hypotension [Unknown]
  - Pleural effusion [Recovered/Resolved]
  - Stoma site infection [Recovered/Resolved]

NARRATIVE: CASE EVENT DATE: 20170330
